FAERS Safety Report 18931817 (Version 1)
Quarter: 2021Q1

REPORT INFORMATION
  Report Type: Spontaneous
  Country: US (occurrence: US)
  Receive Date: 20210223
  Receipt Date: 20210223
  Transmission Date: 20210420
  Serious: No
  Sender: FDA-Public Use
  Company Number: US-IGSA-BIG0012648

PATIENT
  Sex: Female
  Weight: 41.27 kg

DRUGS (12)
  1. VITAMIN D 2000 [Concomitant]
     Active Substance: VITAMIN D NOS
  2. ALBUTEROL SULFATE;IPRATROPIUM BROMIDE [Concomitant]
  3. PREDNISONE. [Concomitant]
     Active Substance: PREDNISONE
  4. MUCINEX [Concomitant]
     Active Substance: GUAIFENESIN
  5. COMBIVENT [Concomitant]
     Active Substance: ALBUTEROL SULFATE\IPRATROPIUM BROMIDE
  6. PROLASTIN?C LIQUID [Suspect]
     Active Substance: .ALPHA.1-PROTEINASE INHIBITOR HUMAN
     Indication: ALPHA-1 ANTITRYPSIN DEFICIENCY
     Dosage: 2746 MILLIGRAM, Q.WK.
     Route: 042
     Dates: start: 20190417
  7. LEXAPRO [Concomitant]
     Active Substance: ESCITALOPRAM OXALATE
  8. BREO ELLIPTA [Concomitant]
     Active Substance: FLUTICASONE FUROATE\VILANTEROL TRIFENATATE
  9. PROAIR BRONQUIAL [Concomitant]
  10. ZOLOFT [Concomitant]
     Active Substance: SERTRALINE HYDROCHLORIDE
  11. PROLIA [Concomitant]
     Active Substance: DENOSUMAB
  12. TOVIAZ [Concomitant]
     Active Substance: FESOTERODINE FUMARATE

REACTIONS (1)
  - Dyspnoea [Recovering/Resolving]
